FAERS Safety Report 8886656 (Version 1)
Quarter: 2012Q4

REPORT INFORMATION
  Report Type: 
  Country: US (occurrence: US)
  Receive Date: 20121105
  Receipt Date: 20121105
  Transmission Date: 20130627
  Serious: Yes (Hospitalization, Other)
  Sender: FDA-Public Use
  Company Number: PHHY2012US099067

PATIENT
  Age: 2 Month
  Sex: Male

DRUGS (1)
  1. METHADONE [Suspect]

REACTIONS (14)
  - Metabolic acidosis [Unknown]
  - Neonatal respiratory acidosis [Unknown]
  - Toxicity to various agents [Recovered/Resolved]
  - Unresponsive to stimuli [Unknown]
  - Pallor [Unknown]
  - Hypokinesia [Recovered/Resolved]
  - Livedo reticularis [Recovered/Resolved]
  - Bradycardia [Unknown]
  - Hypotonia [Recovered/Resolved]
  - Respiratory failure [Recovered/Resolved]
  - Pulmonary oedema [Recovered/Resolved]
  - Aspiration [Recovered/Resolved]
  - Hiccups [Unknown]
  - Intentional drug misuse [Unknown]
